FAERS Safety Report 4782469-6 (Version None)
Quarter: 2005Q3

REPORT INFORMATION
  Report Type: 
  Country: None (occurrence: None)
  Receive Date: 20050929
  Receipt Date: 20041201
  Transmission Date: 20060218
  Serious: No
  Sender: FDA-Public Use
  Company Number: 393097

PATIENT
  Sex: Male

DRUGS (1)
  1. COREG [Suspect]
     Indication: DRUG USE FOR UNKNOWN INDICATION

REACTIONS (1)
  - URINARY RETENTION [None]
